FAERS Safety Report 4675308-5 (Version None)
Quarter: 2005Q2

REPORT INFORMATION
  Report Type: 
  Country: None (occurrence: None)
  Receive Date: 20050525
  Receipt Date: 20050425
  Transmission Date: 20051028
  Serious: Yes (Other)
  Sender: FDA-Public Use
  Company Number: 200510135BVD

PATIENT
  Sex: Female

DRUGS (6)
  1. CIPROFLOXACIN [Suspect]
     Indication: BRONCHOPNEUMONIA
     Dosage: 250 MG, TID, ORAL
     Route: 048
     Dates: start: 20050211, end: 20050213
  2. AVALOX            (MOXIFLOXACIN HYDROCHLORIDE) [Suspect]
     Indication: BRONCHOPNEUMONIA
     Dosage: 400 MG, ORAL
     Dates: start: 20050214
  3. THEOPHYLLINE [Concomitant]
  4. MUCOSOLVAN [Concomitant]
  5. NOCTAMID [Concomitant]
  6. TAMOXIFEN [Concomitant]

REACTIONS (4)
  - LYMPHOPENIA [None]
  - PLASMACYTOMA [None]
  - RENAL FAILURE ACUTE [None]
  - RENAL TUBULAR DISORDER [None]
